FAERS Safety Report 19471104 (Version 2)
Quarter: 2021Q2

REPORT INFORMATION
  Report Type: Spontaneous
  Country: US (occurrence: US)
  Receive Date: 20210628
  Receipt Date: 20210628
  Transmission Date: 20210717
  Serious: Yes (Other)
  Sender: FDA-Public Use
  Company Number: US-ELI_LILLY_AND_COMPANY-US202106007752

PATIENT
  Sex: Female

DRUGS (6)
  1. HUMULIN R [Suspect]
     Active Substance: INSULIN HUMAN
     Dosage: 100 U, DAILY (AT LUNCH)
     Route: 065
     Dates: start: 2018
  2. HUMULIN R [Suspect]
     Active Substance: INSULIN HUMAN
     Dosage: 100 U, DAILY (AT LUNCH)
     Route: 065
     Dates: start: 2018
  3. HUMULIN R [Suspect]
     Active Substance: INSULIN HUMAN
     Dosage: 100 U, EACH EVENING (BEFORE DINNER)
     Route: 065
     Dates: start: 2018
  4. HUMULIN R [Suspect]
     Active Substance: INSULIN HUMAN
     Dosage: 125 U, EACH MORNING (AT BREAKFAST)
     Route: 065
  5. HUMULIN R [Suspect]
     Active Substance: INSULIN HUMAN
     Dosage: 100 U, EACH EVENING (BEFORE DINNER)
     Route: 065
     Dates: start: 2018
  6. HUMULIN R [Suspect]
     Active Substance: INSULIN HUMAN
     Indication: TYPE 2 DIABETES MELLITUS
     Dosage: 125 U, EACH MORNING (AT BREAKFAST)
     Route: 065
     Dates: start: 2018

REACTIONS (3)
  - Cerebrovascular accident [Unknown]
  - Eye disorder [Unknown]
  - Vision blurred [Not Recovered/Not Resolved]
